FAERS Safety Report 14600742 (Version 1)
Quarter: 2018Q1

REPORT INFORMATION
  Report Type: Spontaneous
  Country: US (occurrence: US)
  Receive Date: 20180305
  Receipt Date: 20180305
  Transmission Date: 20180509
  Serious: No
  Sender: FDA-Public Use
  Company Number: US-SUNOVION-2018SUN000705

PATIENT
  Sex: Male

DRUGS (1)
  1. LATUDA [Suspect]
     Active Substance: LURASIDONE HYDROCHLORIDE
     Indication: SCHIZOAFFECTIVE DISORDER
     Dosage: 120 MG, QD
     Route: 048

REACTIONS (5)
  - Weight decreased [Unknown]
  - Headache [Unknown]
  - Drug administration error [Unknown]
  - Somnolence [Unknown]
  - Insomnia [Unknown]
